FAERS Safety Report 22177724 (Version 1)
Quarter: 2023Q2

REPORT INFORMATION
  Report Type: Spontaneous
  Country: AU (occurrence: None)
  Receive Date: 20230405
  Receipt Date: 20230405
  Transmission Date: 20230721
  Serious: Yes (Other)
  Sender: FDA-Public Use
  Company Number: 2023A072811

PATIENT
  Sex: Female

DRUGS (13)
  1. ACALABRUTINIB [Suspect]
     Active Substance: ACALABRUTINIB
  2. CYCLOPHOSPHAMIDE [Suspect]
     Active Substance: CYCLOPHOSPHAMIDE
  3. DOXORUBICIN [Suspect]
     Active Substance: DOXORUBICIN
  4. RITUXIMAB [Suspect]
     Active Substance: RITUXIMAB
  5. PEGFILGRASTIM [Suspect]
     Active Substance: PEGFILGRASTIM
  6. BENDAMUSTINE HYDROCHLORIDE [Suspect]
     Active Substance: BENDAMUSTINE HYDROCHLORIDE
  7. LEUCOVORIN CALCIUM [Suspect]
     Active Substance: LEUCOVORIN CALCIUM
  8. CYTARABINE [Suspect]
     Active Substance: CYTARABINE
  9. DEXAMETHASONE [Suspect]
     Active Substance: DEXAMETHASONE
  10. IBRUTINIB [Suspect]
     Active Substance: IBRUTINIB
  11. MESNA [Suspect]
     Active Substance: MESNA
  12. METHOTREXATE [Suspect]
     Active Substance: METHOTREXATE
  13. VINCRISTINE SULFATE [Suspect]
     Active Substance: VINCRISTINE SULFATE

REACTIONS (4)
  - Deafness [Unknown]
  - Mantle cell lymphoma recurrent [Unknown]
  - Disease progression [Unknown]
  - Lymphadenopathy [Unknown]
